FAERS Safety Report 5451735-3 (Version None)
Quarter: 2007Q3

REPORT INFORMATION
  Report Type: 
  Country: None (occurrence: None)
  Receive Date: 20070913
  Receipt Date: 20070903
  Transmission Date: 20080115
  Serious: Yes (Hospitalization)
  Sender: FDA-Public Use
  Company Number: GB-PFIZER INC-2007070935

PATIENT
  Sex: Female

DRUGS (7)
  1. CHAMPIX [Suspect]
     Indication: SMOKING CESSATION THERAPY
     Route: 048
     Dates: start: 20070501, end: 20070703
  2. GLYCERYL TRINITRATE [Suspect]
     Route: 060
  3. ANTIHYPERTENSIVES [Concomitant]
  4. ADIZEM-XL [Concomitant]
     Route: 048
  5. RAMIPRIL [Concomitant]
     Route: 048
  6. NICORANDIL [Concomitant]
     Route: 048
  7. SEREVENT [Concomitant]
     Route: 055

REACTIONS (3)
  - DIZZINESS [None]
  - FALL [None]
  - SYNCOPE [None]
